FAERS Safety Report 5572847-X (Version None)
Quarter: 2007Q4

REPORT INFORMATION
  Report Type: 
  Country: None (occurrence: None)
  Receive Date: 20071223
  Receipt Date: 20071220
  Transmission Date: 20080405
  Serious: Yes (Life-Threatening, Hospitalization)
  Sender: FDA-Public Use
  Company Number: PHBS2007NL21254

PATIENT
  Sex: Male

DRUGS (3)
  1. CLOZAPINE [Suspect]
     Indication: SCHIZOPHRENIA
     Dates: start: 19830101, end: 20060401
  2. FLUVOXAMINE MALEATE [Concomitant]
     Dosage: 50 MG/DAY
  3. OXAZEPAM [Concomitant]
     Dosage: 25 MG, BID

REACTIONS (6)
  - ANTIPSYCHOTIC DRUG LEVEL INCREASED [None]
  - DELIRIUM [None]
  - ILEUS PARALYTIC [None]
  - INFECTION [None]
  - PYREXIA [None]
  - URINARY RETENTION [None]
